FAERS Safety Report 5358116-1 (Version None)
Quarter: 2007Q2

REPORT INFORMATION
  Report Type: 
  Country: None (occurrence: None)
  Receive Date: 20070530
  Receipt Date: 20061107
  Transmission Date: 20071010
  Serious: Yes (Hospitalization)
  Sender: FDA-Public Use
  Company Number: US200608004338

PATIENT
  Sex: Female
  Weight: 72.1 kg

DRUGS (4)
  1. ZYPREXA [Suspect]
     Dosage: SEE IMAGE
     Dates: start: 19990701, end: 20011101
  2. ZYPREXA [Suspect]
     Dosage: SEE IMAGE
     Dates: start: 19990701, end: 20011101
  3. ZOLOFT [Concomitant]
  4. RISPERDAL /SWE/ (RISPERIDONE) [Concomitant]

REACTIONS (4)
  - BLOOD CHOLESTEROL INCREASED [None]
  - BLOOD GLUCOSE INCREASED [None]
  - DIABETES MELLITUS [None]
  - HYPERTENSION [None]
